FAERS Safety Report 17326188 (Version 2)
Quarter: 2020Q1

REPORT INFORMATION
  Report Type: Spontaneous
  Country: TR (occurrence: TR)
  Receive Date: 20200127
  Receipt Date: 20200206
  Transmission Date: 20200409
  Serious: Yes (Hospitalization)
  Sender: FDA-Public Use
  Company Number: TR-PFIZER INC-2020035688

PATIENT
  Age: 73 Year
  Sex: Female

DRUGS (2)
  1. REAMPLA [Suspect]
     Active Substance: PALBOCICLIB
     Indication: OESTROGEN RECEPTOR POSITIVE BREAST CANCER
     Dosage: 125 MG, 1X/DAY (FIRST CYCLE)
     Route: 048
     Dates: start: 20191230, end: 20200119
  2. FEMARA [Concomitant]
     Active Substance: LETROZOLE
     Indication: BREAST CANCER
     Dosage: 2.5 MG, 1X/DAY
     Route: 048
     Dates: start: 20191230

REACTIONS (3)
  - Hyponatraemia [Recovered/Resolved]
  - Cardiac failure [Unknown]
  - Respiratory distress [Recovered/Resolved]
